FAERS Safety Report 10195100 (Version 3)
Quarter: 2014Q3

REPORT INFORMATION
  Report Type: Spontaneous
  Country: DK (occurrence: DK)
  Receive Date: 20140526
  Receipt Date: 20140701
  Transmission Date: 20150326
  Serious: Yes (Other)
  Sender: FDA-Public Use
  Company Number: DK-ACTELION-A-CH2014-98908

PATIENT
  Age: 30 Year
  Sex: Female

DRUGS (2)
  1. TRACLEER [Suspect]
     Active Substance: BOSENTAN\BOSENTAN MONOHYDRATE
     Indication: PULMONARY ARTERIAL HYPERTENSION
     Dosage: 125 MG, BID
     Route: 048
     Dates: start: 20110101, end: 20140508
  2. SILDENAFIL [Concomitant]
     Active Substance: SILDENAFIL

REACTIONS (4)
  - Pregnancy [Recovered/Resolved]
  - Cyanosis [Unknown]
  - Abortion spontaneous [Unknown]
  - Uterine dilation and evacuation [Unknown]

NARRATIVE: CASE EVENT DATE: 20140610
